FAERS Safety Report 23204846 (Version 1)
Quarter: 2023Q4

REPORT INFORMATION
  Report Type: Report from Study
  Country: RU (occurrence: None)
  Receive Date: 20231120
  Receipt Date: 20231120
  Transmission Date: 20240110
  Serious: Yes (Hospitalization)
  Sender: FDA-Public Use
  Company Number: RU-ROCHE-2649099

PATIENT
  Age: 69 Year
  Sex: Male
  Weight: 75 kg

DRUGS (10)
  1. FARICIMAB [Suspect]
     Active Substance: FARICIMAB
     Indication: Diabetic retinal oedema
     Dosage: ON 12/MAY/2020 AT 14:09, THE PATIENT RECEIVED THE MOST RECENT DOSE OF BLINDED FARICIMAB PRIOR TO ADV
     Route: 050
     Dates: start: 20190507
  2. AFLIBERCEPT [Concomitant]
     Active Substance: AFLIBERCEPT
     Indication: Diabetic retinal oedema
     Dosage: DATE OF MOST RECENT DOSE OF OPEN LABEL AFLIBERCEPT PRIOR TO SAE ONSET: 29/OCT/2019
     Route: 050
     Dates: start: 20190514
  3. METFORMIN HYDROCHLORIDE [Concomitant]
     Active Substance: METFORMIN HYDROCHLORIDE
     Indication: Diabetes mellitus
     Route: 048
  4. DIABETON (RUSSIA) [Concomitant]
     Indication: Diabetes mellitus
     Route: 048
  5. ENALAPRIL [Concomitant]
     Active Substance: ENALAPRIL
     Indication: Hypertension
     Route: 048
  6. CARDIOMAGNYL [Concomitant]
     Active Substance: ASPIRIN\MAGNESIUM HYDROXIDE
     Indication: Hypertension
     Route: 048
  7. VITABACT [Concomitant]
     Active Substance: PICLOXYDINE DIHYDROCHLORIDE
     Indication: Conjunctivitis
     Route: 047
     Dates: start: 20200213, end: 20200227
  8. NEVANAC [Concomitant]
     Active Substance: NEPAFENAC
     Indication: Conjunctivitis
     Route: 047
     Dates: start: 20200213
  9. DORZOPT (RUSSIA) [Concomitant]
     Indication: Conjunctivitis
     Route: 047
     Dates: start: 20200213, end: 20200220
  10. COSOPT [Concomitant]
     Active Substance: DORZOLAMIDE HYDROCHLORIDE\TIMOLOL MALEATE
     Indication: Intraocular pressure increased
     Route: 047
     Dates: start: 20191212, end: 20191212

REACTIONS (1)
  - Open angle glaucoma [Recovered/Resolved]

NARRATIVE: CASE EVENT DATE: 20191212
